FAERS Safety Report 5133279-1 (Version None)
Quarter: 2006Q4

REPORT INFORMATION
  Report Type: 
  Country: None (occurrence: None)
  Receive Date: 20060831
  Receipt Date: 20060706
  Transmission Date: 20070319
  Serious: No
  Sender: FDA-Public Use
  Company Number: 2006-BP-07182BP

PATIENT
  Age: 71 Year
  Sex: Male

DRUGS (9)
  1. SPIRIVA [Suspect]
     Indication: CHRONIC OBSTRUCTIVE PULMONARY DISEASE
     Dosage: 18 MCG (18 MCG,1 IN 1 D),IH
     Dates: start: 20051101
  2. SPIRIVA [Suspect]
     Indication: PULMONARY SARCOIDOSIS
     Dosage: 18 MCG (18 MCG,1 IN 1 D),IH
     Dates: start: 20051101
  3. SPIRIVA [Suspect]
  4. ATROVENT INHALATION AEROSOL HFA (IPRATROPIUM-BR) [Concomitant]
  5. FLOVENT [Concomitant]
  6. DILANTIN INSTATAB [Concomitant]
  7. ATIVAN [Concomitant]
  8. LIPITOR [Concomitant]
  9. CARDURA [Concomitant]

REACTIONS (1)
  - DYSPNOEA [None]
